FAERS Safety Report 8174633-3 (Version None)
Quarter: 2012Q1

REPORT INFORMATION
  Report Type: 
  Country: None (occurrence: None)
  Receive Date: 20120229
  Receipt Date: 20120217
  Transmission Date: 20120608
  Serious: Yes (Death, Hospitalization)
  Sender: FDA-Public Use
  Company Number: FR-FRI-1000024072

PATIENT
  Sex: Female

DRUGS (7)
  1. DEPAKOTE [Concomitant]
  2. ASPIRIN [Concomitant]
     Indication: ATRIAL FIBRILLATION
     Dosage: 75 MG
     Route: 048
     Dates: start: 20080101, end: 20110701
  3. FERROUS SULFATE TAB [Concomitant]
     Dosage: 2 DOSAGE FORMS
     Route: 048
     Dates: start: 20110101, end: 20110101
  4. EQUANIL [Concomitant]
     Indication: COGNITIVE DISORDER
     Route: 048
     Dates: start: 20090901, end: 20110701
  5. MEMANTINE [Suspect]
     Indication: ABNORMAL BEHAVIOUR
  6. MEMANTINE [Suspect]
     Indication: COGNITIVE DISORDER
     Dosage: 20 MG
     Route: 048
     Dates: start: 20090916, end: 20110701
  7. POLYETHYLENE GLYCOL [Concomitant]
     Indication: CONSTIPATION
     Dosage: 1 DOSAGE FORM
     Route: 048
     Dates: start: 20110101, end: 20110101

REACTIONS (7)
  - VERTIGO [None]
  - COGNITIVE DISORDER [None]
  - PHLEBITIS [None]
  - SOMNOLENCE [None]
  - DISSEMINATED INTRAVASCULAR COAGULATION [None]
  - FALL [None]
  - PULMONARY EMBOLISM [None]
